FAERS Safety Report 7401624-X (Version None)
Quarter: 2011Q2

REPORT INFORMATION
  Report Type: 
  Country: None (occurrence: None)
  Receive Date: 20110408
  Receipt Date: 20110331
  Transmission Date: 20111010
  Serious: No
  Sender: FDA-Public Use
  Company Number: US-BIOGENIDEC-2011BI012420

PATIENT
  Sex: Female

DRUGS (2)
  1. TYSABRI [Suspect]
     Route: 042
     Dates: start: 20070130, end: 20080401
  2. TYSABRI [Suspect]
     Indication: MULTIPLE SCLEROSIS
     Route: 042
     Dates: start: 20100826

REACTIONS (1)
  - COGNITIVE DISORDER [None]
